FAERS Safety Report 13110363 (Version 1)
Quarter: 2017Q1

REPORT INFORMATION
  Report Type: Spontaneous
  Country: US (occurrence: US)
  Receive Date: 20170112
  Receipt Date: 20170112
  Transmission Date: 20170428
  Serious: Yes (Other)
  Sender: FDA-Public Use
  Company Number: None

PATIENT
  Age: 9 Year
  Sex: Female
  Weight: 43.2 kg

DRUGS (4)
  1. KENALOG-40 [Suspect]
     Active Substance: TRIAMCINOLONE ACETONIDE
     Indication: NASOPHARYNGITIS
     Dosage: OTHER ROUTE:COMBO INJECTION?
     Dates: start: 20150128, end: 20160229
  2. LINCOCIN [Suspect]
     Active Substance: LINCOMYCIN
     Indication: NASOPHARYNGITIS
     Dosage: ?          OTHER ROUTE:COMBO INJECTION?
     Dates: start: 20150128, end: 20160229
  3. LINCOCIN [Suspect]
     Active Substance: LINCOMYCIN
     Indication: COUGH
     Dosage: ?          OTHER ROUTE:COMBO INJECTION?
     Dates: start: 20150128, end: 20160229
  4. KENALOG-40 [Suspect]
     Active Substance: TRIAMCINOLONE ACETONIDE
     Indication: COUGH
     Dosage: OTHER ROUTE:COMBO INJECTION?
     Dates: start: 20150128, end: 20160229

REACTIONS (4)
  - Muscle atrophy [None]
  - Pigmentation disorder [None]
  - Emotional disorder [None]
  - Drug ineffective [None]

NARRATIVE: CASE EVENT DATE: 20150128
